FAERS Safety Report 7422927-9 (Version None)
Quarter: 2011Q2

REPORT INFORMATION
  Report Type: 
  Country: None (occurrence: None)
  Receive Date: 20110419
  Receipt Date: 20110411
  Transmission Date: 20111010
  Serious: Yes (Death)
  Sender: FDA-Public Use
  Company Number: JP-ASTRAZENECA-2011SE21632

PATIENT
  Age: 49 Year
  Sex: Female

DRUGS (5)
  1. TAKEPRON [Suspect]
  2. FUROSEMIDE [Suspect]
     Route: 048
  3. ALEVIATIN [Suspect]
     Dates: end: 20101208
  4. ALDACTONE [Suspect]
     Route: 048
  5. SEROQUEL [Suspect]
     Route: 048
     Dates: end: 20101207

REACTIONS (1)
  - TOXIC SKIN ERUPTION [None]
